FAERS Safety Report 24306920 (Version 1)
Quarter: 2024Q3

REPORT INFORMATION
  Report Type: Spontaneous
  Country: US (occurrence: None)
  Receive Date: 20240910
  Receipt Date: 20240910
  Transmission Date: 20241017
  Serious: Yes (Hospitalization)
  Sender: Public
  Company Number: None

PATIENT
  Age: 68 Year
  Sex: Female

DRUGS (2)
  1. OPSUMIT [Suspect]
     Active Substance: MACITENTAN
     Indication: Pulmonary arterial hypertension
     Dosage: FREQUENCY : DAILY;?
     Route: 048
     Dates: start: 202307
  2. UPTRAVI (MNTH 2 TITR) [Concomitant]

REACTIONS (3)
  - Gastrointestinal haemorrhage [None]
  - Haemoglobin decreased [None]
  - Oesophageal candidiasis [None]

NARRATIVE: CASE EVENT DATE: 20240826
